FAERS Safety Report 4555039-2 (Version None)
Quarter: 2005Q1

REPORT INFORMATION
  Report Type: 
  Country: None (occurrence: None)
  Receive Date: 20041228
  Receipt Date: 20040409
  Transmission Date: 20050727
  Serious: Yes (Other)
  Sender: FDA-Public Use
  Company Number: PHEH2004US04079

PATIENT
  Age: 51 Year
  Sex: Male

DRUGS (1)
  1. AREDIA [Suspect]
     Dosage: 90MG OVER 2-4 HOURS
     Dates: start: 19950505, end: 19991213

REACTIONS (4)
  - EXOSTOSIS [None]
  - OSTEONECROSIS [None]
  - SEQUESTRECTOMY [None]
  - TOOTH EXTRACTION [None]
